FAERS Safety Report 10899168 (Version 1)
Quarter: 2015Q1

REPORT INFORMATION
  Report Type: Spontaneous
  Country: US (occurrence: US)
  Receive Date: 20150309
  Receipt Date: 20150309
  Transmission Date: 20150721
  Serious: Yes (Hospitalization, Congenital Anomaly, Other)
  Sender: FDA-Public Use
  Company Number: US-APOTEX-2015AP007054

PATIENT
  Sex: Female

DRUGS (3)
  1. KLONOPIN [Concomitant]
     Active Substance: CLONAZEPAM
     Indication: PRODUCT USED FOR UNKNOWN INDICATION
     Dosage: UNK
     Route: 065
  2. PAXIL [Suspect]
     Active Substance: PAROXETINE HYDROCHLORIDE
     Indication: ANXIETY
     Dosage: 20 MG, UNKNOWN
     Route: 064
     Dates: end: 2002
  3. PAXIL [Suspect]
     Active Substance: PAROXETINE HYDROCHLORIDE
     Indication: DEPRESSION
     Dosage: 40 MG, UNKNOWN
     Route: 064
     Dates: end: 2002

REACTIONS (11)
  - Neonatal respiratory failure [Unknown]
  - Brain injury [Unknown]
  - Autism spectrum disorder [Unknown]
  - Haemoptysis [Unknown]
  - Dysphagia [Unknown]
  - Feeding disorder neonatal [Unknown]
  - Developmental delay [Unknown]
  - Hearing impaired [Unknown]
  - Foetal exposure during pregnancy [Unknown]
  - Pulmonary haemorrhage [Unknown]
  - Pulmonary haemosiderosis [Unknown]
